FAERS Safety Report 15316359 (Version 3)
Quarter: 2018Q3

REPORT INFORMATION
  Report Type: Report from Study
  Country: AU (occurrence: AU)
  Receive Date: 20180824
  Receipt Date: 20180917
  Transmission Date: 20181010
  Serious: Yes (Other)
  Sender: FDA-Public Use
  Company Number: AU-ROCHE-2172518

PATIENT
  Age: 67 Year
  Sex: Male
  Weight: 63.3 kg

DRUGS (19)
  1. VITAMIN B3 [Concomitant]
     Active Substance: NIACIN
     Route: 048
     Dates: start: 201708, end: 20180719
  2. COLOSTRUM [Concomitant]
     Active Substance: DIETARY SUPPLEMENT
     Route: 048
     Dates: start: 201803, end: 20180719
  3. COENZYME Q10 [Concomitant]
     Active Substance: UBIDECARENONE
     Route: 048
     Dates: start: 201708, end: 20180719
  4. VITAMIN C [Concomitant]
     Active Substance: ASCORBIC ACID
     Route: 048
     Dates: start: 2012, end: 20180719
  5. LYRICA [Concomitant]
     Active Substance: PREGABALIN
     Indication: NEURALGIA
     Route: 048
     Dates: start: 2013
  6. SELENIUM [Concomitant]
     Active Substance: SELENIUM
     Route: 048
     Dates: start: 201708, end: 20180719
  7. CALCIUM CITRATE [Concomitant]
     Active Substance: CALCIUM CITRATE
     Route: 048
     Dates: start: 2016, end: 20180719
  8. DOXYCYCLINE. [Concomitant]
     Active Substance: DOXYCYCLINE
     Indication: RASH
     Route: 048
     Dates: start: 20180731
  9. SOMAC [Concomitant]
     Active Substance: PANTOPRAZOLE SODIUM
     Indication: GASTROOESOPHAGEAL REFLUX DISEASE
     Route: 047
     Dates: start: 2008
  10. ZINC PICOLINATE [Concomitant]
     Active Substance: ZINC PICOLINATE
     Route: 048
     Dates: start: 201708, end: 20180719
  11. PANADOL [Concomitant]
     Active Substance: ACETAMINOPHEN
     Indication: BACK PAIN
     Route: 048
     Dates: start: 2006
  12. LYRICA [Concomitant]
     Active Substance: PREGABALIN
     Route: 048
     Dates: start: 2013
  13. SUPER ENZYMES [Concomitant]
     Route: 048
     Dates: start: 201708, end: 20180719
  14. ENDONE [Concomitant]
     Active Substance: OXYCODONE HYDROCHLORIDE
     Indication: BACK PAIN
     Route: 048
     Dates: start: 2013
  15. HYDROCORTISONE. [Concomitant]
     Active Substance: HYDROCORTISONE
     Indication: RASH
     Dosage: MEDICATION DOSE UNIT: OTHER
     Route: 061
     Dates: start: 20180802
  16. ATEZOLIZUMAB. [Suspect]
     Active Substance: ATEZOLIZUMAB
     Indication: MALIGNANT MELANOMA
     Dosage: DATE OF MOST RECENT DOSE (840 MG) OF ATEZOLIZUMAB PRIOR TO SAE ONSET: 16/AUG/2018 AT 11:28?DAY 15 OF
     Route: 042
     Dates: start: 20180802
  17. COBIMETINIB. [Suspect]
     Active Substance: COBIMETINIB
     Indication: MALIGNANT MELANOMA
     Dosage: DATE OF MOST RECENT DOSE (60 MG) OF COBIMETINIB PRIOR TO SAE ONSET: 17/AUG/2018?DAYS 1 TO 21 OF EACH
     Route: 048
     Dates: start: 20180719
  18. BUSCOPAN [Concomitant]
     Active Substance: BUTYLSCOPOLAMINE BROMIDE
     Indication: ABDOMINAL PAIN
     Route: 048
     Dates: start: 20180720, end: 20180722
  19. CLINDAMYCIN. [Concomitant]
     Active Substance: CLINDAMYCIN
     Indication: RASH
     Route: 061
     Dates: start: 20180802

REACTIONS (1)
  - Iridocyclitis [Not Recovered/Not Resolved]

NARRATIVE: CASE EVENT DATE: 20180817
